FAERS Safety Report 20257179 (Version 2)
Quarter: 2022Q1

REPORT INFORMATION
  Report Type: Report from Study
  Country: US (occurrence: US)
  Receive Date: 20211230
  Receipt Date: 20220125
  Transmission Date: 20220424
  Serious: Yes (Hospitalization, Other)
  Sender: FDA-Public Use
  Company Number: US-UCBSA-2021060005

PATIENT
  Sex: Female
  Weight: 69.39 kg

DRUGS (3)
  1. LACOSAMIDE [Suspect]
     Active Substance: LACOSAMIDE
     Indication: Seizure
     Dosage: 250MG AM AND 300MG PM
  2. TOPAMAX [Concomitant]
     Active Substance: TOPIRAMATE
     Indication: Product used for unknown indication
  3. ATIVAN [Concomitant]
     Active Substance: LORAZEPAM
     Indication: Seizure

REACTIONS (9)
  - Spinal operation [Unknown]
  - Seizure [Unknown]
  - Fall [Unknown]
  - Upper limb fracture [Unknown]
  - Accident [Unknown]
  - Spinal cord injury [Unknown]
  - Product use issue [Unknown]
  - Overdose [Unknown]
  - Inappropriate schedule of product administration [Unknown]

NARRATIVE: CASE EVENT DATE: 20210101
